FAERS Safety Report 9307448 (Version 2)
Quarter: 2013Q2

REPORT INFORMATION
  Report Type: Spontaneous
  Country: US (occurrence: US)
  Receive Date: 20130524
  Receipt Date: 20130603
  Transmission Date: 20140414
  Serious: Yes (Other)
  Sender: FDA-Public Use
  Company Number: US-JNJFOC-20130509608

PATIENT
  Sex: Female
  Weight: 99.79 kg

DRUGS (16)
  1. TOPAMAX [Suspect]
     Indication: CONVULSION
     Route: 065
  2. NEURONTIN [Suspect]
     Indication: CONVULSION
     Route: 048
  3. NEURONTIN [Suspect]
     Indication: CONVULSION
     Route: 048
     Dates: start: 200911
  4. KEPPRA [Suspect]
     Indication: CONVULSION
     Route: 048
  5. FERROUS SULPHATE [Concomitant]
     Indication: ANAEMIA
     Route: 048
  6. MONTELUKAST [Concomitant]
     Indication: ASTHMA
     Route: 065
  7. DEPAKOTE ER [Concomitant]
     Indication: CONVULSION
     Route: 048
  8. NAPROXEN [Concomitant]
     Indication: ARTHRALGIA
     Route: 048
  9. CODEINE [Concomitant]
     Indication: MENORRHAGIA
     Route: 048
  10. CODEINE [Concomitant]
     Indication: PREMATURE MENOPAUSE
     Route: 048
  11. DIOVAN HCT [Concomitant]
     Indication: HYPERTENSION
     Dosage: 12.5/80
     Route: 065
  12. IMITREX [Concomitant]
     Indication: MIGRAINE
     Route: 065
  13. ADVAIR [Concomitant]
     Indication: CHRONIC OBSTRUCTIVE PULMONARY DISEASE
     Route: 065
  14. ADVAIR [Concomitant]
     Indication: ASTHMA
     Route: 065
  15. VENTOLIN [Concomitant]
     Indication: CHRONIC OBSTRUCTIVE PULMONARY DISEASE
     Route: 065
  16. VENTOLIN [Concomitant]
     Indication: ASTHMA
     Route: 065

REACTIONS (2)
  - Fall [Unknown]
  - Arthralgia [Not Recovered/Not Resolved]
